FAERS Safety Report 13741362 (Version 1)
Quarter: 2017Q3

REPORT INFORMATION
  Report Type: Report from Study
  Country: IT (occurrence: IT)
  Receive Date: 20170711
  Receipt Date: 20170711
  Transmission Date: 20171127
  Serious: Yes (Hospitalization, Other)
  Sender: FDA-Public Use
  Company Number: IT-MYLANLABS-2017M1037443

PATIENT

DRUGS (5)
  1. DICLOFENAC [Suspect]
     Active Substance: DICLOFENAC
     Indication: PRODUCT USED FOR UNKNOWN INDICATION
     Dosage: 75MG
     Route: 030
  2. KETOROLAC [Interacting]
     Active Substance: KETOROLAC\KETOROLAC TROMETHAMINE
     Dosage: 30MG
     Route: 030
  3. BETAMETHASONE. [Interacting]
     Active Substance: BETAMETHASONE
     Indication: PRODUCT USED FOR UNKNOWN INDICATION
     Dosage: 4MG
     Route: 030
  4. NIMESULIDE [Interacting]
     Active Substance: NIMESULIDE
     Dosage: 400MG
     Route: 048
  5. THIOCOLCHICOSIDE [Suspect]
     Active Substance: THIOCOLCHICOSIDE
     Dosage: 4MG
     Route: 030

REACTIONS (9)
  - Gastritis erosive [Recovered/Resolved]
  - Off label use [Recovered/Resolved]
  - Drug interaction [Recovered/Resolved]
  - Incorrect dose administered [Recovered/Resolved]
  - Rectal haemorrhage [Recovered/Resolved]
  - Erosive duodenitis [Recovered/Resolved]
  - Melaena [Recovered/Resolved]
  - Anaemia [Recovered/Resolved]
  - Incorrect drug administration duration [Recovered/Resolved]
